FAERS Safety Report 5779236-3 (Version None)
Quarter: 2008Q2

REPORT INFORMATION
  Report Type: 
  Country: None (occurrence: None)
  Receive Date: 20080601
  Receipt Date: 20080109
  Transmission Date: 20081010
  Serious: No
  Sender: FDA-Public Use
  Company Number: US200801001931

PATIENT
  Age: 66 Year
  Sex: Male
  Weight: 120.6 kg

DRUGS (6)
  1. BYETTA [Suspect]
     Indication: INSULIN-REQUIRING TYPE 2 DIABETES MELLITUS
     Dosage: 5 UG, 2/D, SUBCUTANEOUS; 5 UG, 2/D,
     Route: 058
     Dates: start: 20071213, end: 20071217
  2. BYETTA [Suspect]
     Indication: INSULIN-REQUIRING TYPE 2 DIABETES MELLITUS
     Dosage: 5 UG, 2/D, SUBCUTANEOUS; 5 UG, 2/D,
     Route: 058
     Dates: start: 20080101
  3. EXENATIDE 5MCG PEN, DISPOSABLE DEVICE (EXENATIDE PEN (5 MCG) [Concomitant]
  4. HUMULIN N [Concomitant]
  5. HUMALOG [Concomitant]
  6. NEXIUM [Concomitant]

REACTIONS (5)
  - DECREASED APPETITE [None]
  - DYSPHAGIA [None]
  - NAUSEA [None]
  - PHARYNGITIS [None]
  - PYREXIA [None]
